FAERS Safety Report 13657042 (Version 2)
Quarter: 2017Q2

REPORT INFORMATION
  Report Type: Spontaneous
  Country: US (occurrence: US)
  Receive Date: 20170615
  Receipt Date: 20170623
  Transmission Date: 20170830
  Serious: No
  Sender: FDA-Public Use
  Company Number: US-INCYTE CORPORATION-2017IN003623

PATIENT

DRUGS (4)
  1. JAKAFI [Suspect]
     Active Substance: RUXOLITINIB
     Dosage: 15 MG, QD, IN AM ONLY
     Route: 048
     Dates: start: 20160513
  2. JAKAFI [Suspect]
     Active Substance: RUXOLITINIB
     Indication: MYELOFIBROSIS
     Dosage: 10 MG, PM ONLY ON MON, WED, SAT
     Route: 048
     Dates: start: 20160513
  3. JAKAFI [Suspect]
     Active Substance: RUXOLITINIB
     Dosage: 15 MG BID ON SUNDAY,MONDAY,THURSDAY AND FRIDAY
     Route: 048
     Dates: start: 20170404
  4. JAKAFI [Suspect]
     Active Substance: RUXOLITINIB
     Dosage: 15MG IN THE AM AND 10MG IN THE PM ON TUESDAYS,WEDNESDAYS AND SATURDAYS
     Route: 048
     Dates: start: 20170404

REACTIONS (3)
  - Blood cholesterol increased [Unknown]
  - Weight increased [Unknown]
  - Peripheral swelling [Unknown]

NARRATIVE: CASE EVENT DATE: 20170407
